FAERS Safety Report 20386480 (Version 2)
Quarter: 2023Q1

REPORT INFORMATION
  Report Type: Spontaneous
  Country: US (occurrence: US)
  Receive Date: 20220127
  Receipt Date: 20230125
  Transmission Date: 20230417
  Serious: No
  Sender: FDA-Public Use
  Company Number: US-ALLERGAN-2142593US

PATIENT
  Sex: Female

DRUGS (7)
  1. BOTOX [Suspect]
     Active Substance: ONABOTULINUMTOXINA
     Indication: Migraine
     Dosage: UNK, SINGLE
     Dates: start: 20211123, end: 20211123
  2. BOTOX [Suspect]
     Active Substance: ONABOTULINUMTOXINA
     Dosage: UNK, SINGLE
     Dates: start: 20210926, end: 20210926
  3. BOTOX [Suspect]
     Active Substance: ONABOTULINUMTOXINA
     Dosage: UNK, SINGLE
     Dates: start: 20210525, end: 20210525
  4. BOTOX [Suspect]
     Active Substance: ONABOTULINUMTOXINA
     Dosage: UNK, SINGLE
     Dates: start: 20210223, end: 20210223
  5. Greater Occipital Nerve(GON) block injection [Concomitant]
     Indication: Migraine
     Dosage: EVERY 60 DAYS
  6. VITAMINS NOS [Concomitant]
     Active Substance: VITAMINS
  7. AIMOVIG [Concomitant]
     Active Substance: ERENUMAB-AOOE

REACTIONS (2)
  - Headache [Unknown]
  - Migraine [Unknown]
